FAERS Safety Report 7199226-6 (Version None)
Quarter: 2010Q4

REPORT INFORMATION
  Report Type: 
  Country: None (occurrence: None)
  Receive Date: 20101228
  Receipt Date: 20101220
  Transmission Date: 20110411
  Serious: Yes (Other)
  Sender: FDA-Public Use
  Company Number: US-ASTELLAS-2010US005162

PATIENT

DRUGS (1)
  1. AMBISOME [Suspect]
     Indication: PRODUCT USED FOR UNKNOWN INDICATION
     Dosage: UNK
     Route: 065
     Dates: start: 20101203

REACTIONS (3)
  - BLOOD AMYLASE INCREASED [None]
  - BLOOD TRIGLYCERIDES INCREASED [None]
  - LIPASE INCREASED [None]
